FAERS Safety Report 10252236 (Version 3)
Quarter: 2014Q3

REPORT INFORMATION
  Report Type: Report from Study
  Country: CN (occurrence: CN)
  Receive Date: 20140623
  Receipt Date: 20140708
  Transmission Date: 20150326
  Serious: Yes (Hospitalization)
  Sender: FDA-Public Use
  Company Number: CN-ROCHE-1421293

PATIENT
  Age: 76 Year
  Sex: Male
  Weight: 55 kg

DRUGS (1)
  1. AVASTIN [Suspect]
     Active Substance: BEVACIZUMAB
     Indication: COLON CANCER METASTATIC
     Route: 042
     Dates: start: 20130916

REACTIONS (5)
  - Senile dementia [Unknown]
  - Neurodegenerative disorder [Unknown]
  - Somnolence [Unknown]
  - Loss of consciousness [Unknown]
  - Abasia [Unknown]

NARRATIVE: CASE EVENT DATE: 20140617
